FAERS Safety Report 6114690-9 (Version None)
Quarter: 2009Q1

REPORT INFORMATION
  Report Type: 
  Country: None (occurrence: None)
  Receive Date: 20090313
  Receipt Date: 20090305
  Transmission Date: 20090719
  Serious: Yes (Other)
  Sender: FDA-Public Use
  Company Number: US-NOVOPROD-283926

PATIENT
  Age: 12 Year
  Sex: Female
  Weight: 37 kg

DRUGS (1)
  1. NORDITROPIN NORDIFLEX [Suspect]
     Indication: HYPOTHALAMO-PITUITARY DISORDER
     Dosage: 1.5 MG, QD
     Route: 058
     Dates: start: 20070901, end: 20090101

REACTIONS (1)
  - BONE SARCOMA [None]
